FAERS Safety Report 20722754 (Version 3)
Quarter: 2022Q2

REPORT INFORMATION
  Report Type: Spontaneous
  Country: AU (occurrence: AU)
  Receive Date: 20220419
  Receipt Date: 20220504
  Transmission Date: 20220721
  Serious: Yes (Other)
  Sender: FDA-Public Use
  Company Number: AU-NOVARTISPH-NVSC2022AU089349

PATIENT
  Sex: Female

DRUGS (1)
  1. KESIMPTA [Suspect]
     Active Substance: OFATUMUMAB
     Indication: Product used for unknown indication
     Dosage: UNK
     Route: 065

REACTIONS (5)
  - Relapsing-remitting multiple sclerosis [Unknown]
  - Secondary progressive multiple sclerosis [Unknown]
  - Crying [Unknown]
  - Frustration tolerance decreased [Unknown]
  - Asthenia [Unknown]
